FAERS Safety Report 8490569-2 (Version None)
Quarter: 2012Q3

REPORT INFORMATION
  Report Type: 
  Country: None (occurrence: None)
  Receive Date: 20120705
  Receipt Date: 20120626
  Transmission Date: 20120928
  Serious: Yes (Hospitalization)
  Sender: FDA-Public Use
  Company Number: FR-ABBOTT-12P-056-0950459-00

PATIENT
  Sex: Female

DRUGS (6)
  1. METHOTREXATE [Suspect]
     Indication: PSORIASIS
  2. HUMIRA [Suspect]
     Indication: PSORIASIS
  3. METHOTREXATE [Suspect]
     Indication: INFLAMMATORY BOWEL DISEASE
  4. HUMIRA [Suspect]
     Indication: SPONDYLITIS
     Route: 058
     Dates: start: 20100101, end: 20120301
  5. HUMIRA [Suspect]
     Indication: INFLAMMATORY BOWEL DISEASE
  6. METHOTREXATE [Suspect]
     Indication: SPONDYLITIS
     Route: 042
     Dates: start: 20090101, end: 20120605

REACTIONS (4)
  - HYPERTHERMIA [None]
  - NIGHT SWEATS [None]
  - RASH PUSTULAR [None]
  - FOLLICULITIS [None]
